FAERS Safety Report 22368587 (Version 1)
Quarter: 2023Q2

REPORT INFORMATION
  Report Type: Spontaneous
  Country: US (occurrence: US)
  Receive Date: 20230525
  Receipt Date: 20230525
  Transmission Date: 20230722
  Serious: No
  Sender: FDA-Public Use
  Company Number: US-PFIZER INC-202300188911

PATIENT
  Age: 86 Year
  Sex: Male

DRUGS (2)
  1. VYNDAMAX [Interacting]
     Active Substance: TAFAMIDIS
     Indication: Cardiomyopathy
     Dosage: 61 MG, 1X/DAY
     Route: 048
     Dates: start: 20230511
  2. ROSUVASTATIN [Interacting]
     Active Substance: ROSUVASTATIN
     Dosage: AT NIGHT
     Route: 048

REACTIONS (3)
  - Malaise [Unknown]
  - Labelled drug-drug interaction issue [Unknown]
  - Off label use [Unknown]

NARRATIVE: CASE EVENT DATE: 20230511
